FAERS Safety Report 18910456 (Version 1)
Quarter: 2021Q1

REPORT INFORMATION
  Report Type: Spontaneous
  Country: US (occurrence: US)
  Receive Date: 20210218
  Receipt Date: 20210218
  Transmission Date: 20210420
  Serious: No
  Sender: FDA-Public Use
  Company Number: US-TEVA-2021-US-1881917

PATIENT
  Age: 85 Year
  Sex: Female
  Weight: 55.34 kg

DRUGS (1)
  1. TRIAMCINOLONE [Suspect]
     Active Substance: TRIAMCINOLONE
     Indication: PRURITUS
     Route: 065

REACTIONS (3)
  - Drug ineffective [Unknown]
  - Scratch [Unknown]
  - Erythema [Unknown]
